FAERS Safety Report 9290480 (Version 3)
Quarter: 2013Q3

REPORT INFORMATION
  Report Type: Spontaneous
  Country: US (occurrence: US)
  Receive Date: 20130515
  Receipt Date: 20130711
  Transmission Date: 20140515
  Serious: Yes (Hospitalization, Other)
  Sender: FDA-Public Use
  Company Number: US-PFIZER INC-2013148188

PATIENT
  Age: 59 Year
  Sex: Male
  Weight: 82.99 kg

DRUGS (8)
  1. NORVASC [Suspect]
     Indication: HYPERTENSION
     Dosage: 10 MG, 1X/DAY (DAILY)
     Route: 048
     Dates: end: 201211
  2. SPIRIVA [Suspect]
     Indication: CHRONIC OBSTRUCTIVE PULMONARY DISEASE
     Dosage: 18 UG, 1X/DAY (DAILY)
     Route: 055
  3. LASIX [Concomitant]
     Indication: HYPERTENSION
     Dosage: 10 MG, 1X/DAY (DAILY)
  4. DIGOXIN [Concomitant]
     Indication: ATRIAL FIBRILLATION
     Dosage: 1.25 MG, 1X/DAY (DAILY)
  5. LISINOPRIL [Concomitant]
     Indication: HYPERTENSION
     Dosage: 5 MG, 1X/DAY (DAILY)
  6. ALBUTEROL [Concomitant]
     Indication: CHRONIC OBSTRUCTIVE PULMONARY DISEASE
     Dosage: 1 PUFF PRN
  7. LORATADINE [Concomitant]
     Indication: HYPERSENSITIVITY
     Dosage: 10 MG, 1X/DAY (DAILY)
  8. FLONASE [Concomitant]
     Indication: HYPERSENSITIVITY
     Dosage: 2SPRAYS DAILY

REACTIONS (4)
  - Lung carcinoma cell type unspecified stage III [Recovering/Resolving]
  - Pneumonia [Recovered/Resolved]
  - Bronchitis [Unknown]
  - Malaise [Unknown]
